FAERS Safety Report 6137223-X (Version None)
Quarter: 2009Q1

REPORT INFORMATION
  Report Type: 
  Country: None (occurrence: None)
  Receive Date: 20090330
  Receipt Date: 20090323
  Transmission Date: 20090719
  Serious: Yes (Other)
  Sender: FDA-Public Use
  Company Number: PHEH2009US02925

PATIENT
  Sex: Female

DRUGS (9)
  1. RECLAST [Suspect]
     Indication: OSTEOPENIA
     Dosage: 5 MG, UNK
     Route: 042
     Dates: start: 20080110
  2. LEVOTHYROXINE [Concomitant]
  3. CALCIUM WITH VITAMIN D [Concomitant]
  4. GLUCOSAMINE [Concomitant]
  5. MULTI-VITAMINS [Concomitant]
  6. PROTONIX [Concomitant]
  7. VITAMIN D [Concomitant]
  8. LIPITOR [Concomitant]
  9. BETIMOL [Concomitant]

REACTIONS (4)
  - COLECTOMY [None]
  - COLITIS [None]
  - DIARRHOEA [None]
  - RECTAL HAEMORRHAGE [None]
